FAERS Safety Report 17337258 (Version 1)
Quarter: 2020Q1

REPORT INFORMATION
  Report Type: Spontaneous
  Country: US (occurrence: US)
  Receive Date: 20200129
  Receipt Date: 20200129
  Transmission Date: 20200409
  Serious: Yes (Other)
  Sender: FDA-Public Use
  Company Number: NVSC2020US020949

PATIENT
  Age: 43 Year
  Sex: Female

DRUGS (3)
  1. PAZOPANIB [Suspect]
     Active Substance: PAZOPANIB
     Indication: LEIOMYOSARCOMA
     Dosage: 800 MG, QD
     Route: 065
  2. DOCETAXEL. [Suspect]
     Active Substance: DOCETAXEL
     Indication: LEIOMYOSARCOMA
     Dosage: UNK, SIX CYCLE (DAY 8 OF 21-DAY CYCLE)
     Route: 065
  3. GEMCITABINE. [Suspect]
     Active Substance: GEMCITABINE
     Indication: LEIOMYOSARCOMA
     Dosage: UNK, DAY 1 AND 8 OF 21-DAY CYCLE
     Route: 065

REACTIONS (5)
  - Peritoneal disorder [Unknown]
  - Malignant neoplasm progression [Unknown]
  - Leiomyosarcoma [Unknown]
  - Gene mutation [Unknown]
  - Product use in unapproved indication [Unknown]
